FAERS Safety Report 5156707-4 (Version None)
Quarter: 2006Q4

REPORT INFORMATION
  Report Type: 
  Country: None (occurrence: None)
  Receive Date: 20061115
  Receipt Date: 20061031
  Transmission Date: 20070319
  Serious: Yes (Death, Hospitalization)
  Sender: FDA-Public Use
  Company Number: 2006RR-02861

PATIENT
  Age: 65 Year
  Sex: Male

DRUGS (8)
  1. SIMVASTATIN [Suspect]
     Indication: HYPERCHOLESTEROLAEMIA
     Dosage: SEE IMAGE
     Route: 048
  2. SIMVASTATIN [Suspect]
     Indication: HYPERCHOLESTEROLAEMIA
     Dosage: SEE IMAGE
     Route: 048
  3. ATENOLOL TABLETS BP [Concomitant]
  4. ENALAPRIL MATEATE TABLET [Concomitant]
  5. ASPIRIN [Concomitant]
  6. CIMETIDINE [Concomitant]
  7. CIPROFLOXACIN [Concomitant]
  8. RAMIPRIL [Concomitant]

REACTIONS (11)
  - COLITIS ULCERATIVE [None]
  - DEHYDRATION [None]
  - HAEMATOCHEZIA [None]
  - INTESTINAL PERFORATION [None]
  - MEGACOLON [None]
  - MULTI-ORGAN FAILURE [None]
  - NECROSIS ISCHAEMIC [None]
  - PERITONITIS [None]
  - POST PROCEDURAL COMPLICATION [None]
  - PROCTITIS [None]
  - SEPTIC SHOCK [None]
